FAERS Safety Report 7745399-3 (Version None)
Quarter: 2011Q3

REPORT INFORMATION
  Report Type: 
  Country: None (occurrence: None)
  Receive Date: 20110826
  Receipt Date: 20110824
  Transmission Date: 20111222
  Serious: Yes (Life-Threatening, Hospitalization)
  Sender: FDA-Public Use
  Company Number: 2011SP039169

PATIENT
  Age: 79 Year
  Sex: Male

DRUGS (16)
  1. ONDANSETRON HCL [Suspect]
     Indication: NAUSEA
     Dosage: 4 MG;TID;PO
     Route: 048
     Dates: start: 20110623, end: 20110718
  2. PANTOPRAZOLE [Concomitant]
  3. PIPERACILLIN AND TAZOBACTAM [Suspect]
     Dosage: 6 GM;QD;IV
     Route: 042
     Dates: start: 20110624, end: 20110718
  4. LOVENOX [Concomitant]
  5. DITROPAN [Concomitant]
  6. PRIMPERAN TAB [Suspect]
     Indication: NAUSEA
     Dosage: 1 DF;QD;IV   3 DF;QD;
     Route: 042
     Dates: start: 20110617
  7. PRIMPERAN TAB [Suspect]
     Indication: NAUSEA
     Dosage: 1 DF;QD;IV   3 DF;QD;
     Route: 042
     Dates: start: 20110610, end: 20110713
  8. PREDNISONE [Concomitant]
  9. METHOTREXATE [Concomitant]
  10. SPECIAFOLDINE [Concomitant]
  11. MIRTAZAPINE [Suspect]
     Indication: DEPRESSIVE SYMPTOM
     Dosage: 15 MG;QD;PO
     Route: 048
     Dates: start: 20110629, end: 20110717
  12. ZOLPIDEM [Concomitant]
  13. DESLORATADINE [Concomitant]
  14. ALENDRONATE SODIUM [Concomitant]
  15. DEXTROSE [Concomitant]
  16. NICARDIPINE HCL [Concomitant]

REACTIONS (3)
  - MYOCLONUS [None]
  - CARDIO-RESPIRATORY ARREST [None]
  - RENAL FAILURE ACUTE [None]
